FAERS Safety Report 25312266 (Version 1)
Quarter: 2025Q2

REPORT INFORMATION
  Report Type: Spontaneous
  Country: ES (occurrence: ES)
  Receive Date: 20250514
  Receipt Date: 20250514
  Transmission Date: 20250717
  Serious: Yes (Other)
  Sender: AUROBINDO
  Company Number: ES-AEMPS-1669655

PATIENT
  Age: 48 Year
  Sex: Male
  Weight: 77.5 kg

DRUGS (1)
  1. TRAMADOL [Suspect]
     Active Substance: TRAMADOL
     Indication: Arthralgia
     Route: 048
     Dates: start: 20240321

REACTIONS (8)
  - Respiratory distress [Unknown]
  - Formication [Unknown]
  - Tremor [Unknown]
  - Muscle contractions involuntary [Unknown]
  - Balance disorder [Unknown]
  - Psychomotor hyperactivity [Unknown]
  - Cognitive disorder [Unknown]
  - Vision blurred [Unknown]

NARRATIVE: CASE EVENT DATE: 20240321
